FAERS Safety Report 4761042-X (Version None)
Quarter: 2005Q3

REPORT INFORMATION
  Report Type: 
  Country: None (occurrence: None)
  Receive Date: 20050901
  Receipt Date: 20050830
  Transmission Date: 20060218
  Serious: Yes (Other)
  Sender: FDA-Public Use
  Company Number: 216311

PATIENT
  Age: 37 Year
  Sex: Female
  Weight: 81.6 kg

DRUGS (1)
  1. RAPTIVA [Suspect]
     Indication: PSORIASIS
     Dosage: 0.8 MG, 1/WEEK, SUBCUTANEOUS
     Route: 058

REACTIONS (2)
  - LIVER DISORDER [None]
  - LIVER FUNCTION TEST ABNORMAL [None]
